FAERS Safety Report 8199229-9 (Version None)
Quarter: 2012Q1

REPORT INFORMATION
  Report Type: 
  Country: None (occurrence: None)
  Receive Date: 20120309
  Receipt Date: 20120228
  Transmission Date: 20120608
  Serious: Yes (Hospitalization, Other)
  Sender: FDA-Public Use
  Company Number: FR-ELI_LILLY_AND_COMPANY-FR201202007854

PATIENT
  Sex: Female

DRUGS (5)
  1. GEMZAR [Suspect]
     Indication: OVARIAN CANCER
     Dosage: 200 MG, TID
     Dates: start: 20041004, end: 20041006
  2. CARBOPLATIN [Concomitant]
     Dosage: UNK
     Dates: start: 20050201
  3. CARBOPLATIN [Concomitant]
     Indication: OVARIAN CANCER
     Dosage: 100 MG, TID
     Route: 042
     Dates: start: 20041004, end: 20041006
  4. TAXOL [Concomitant]
     Indication: OVARIAN CANCER
     Dosage: 60 MG, TID
     Route: 042
     Dates: start: 20041004, end: 20041006
  5. TAXOL [Concomitant]
     Dosage: UNK, UNKNOWN
     Dates: start: 20050201

REACTIONS (8)
  - ASTHENIA [None]
  - ACUTE RESPIRATORY DISTRESS SYNDROME [None]
  - CARDIAC FAILURE [None]
  - LEUKOPENIA [None]
  - DEHYDRATION [None]
  - DECREASED APPETITE [None]
  - PYREXIA [None]
  - CARDIOMYOPATHY [None]
